FAERS Safety Report 20678193 (Version 1)
Quarter: 2022Q2

REPORT INFORMATION
  Report Type: Spontaneous
  Country: US (occurrence: None)
  Receive Date: 20220404
  Receipt Date: 20220404
  Transmission Date: 20220720
  Serious: Yes (Death)
  Sender: FDA-Public Use
  Company Number: None

PATIENT
  Age: 84 Year
  Sex: Female
  Weight: 75.75 kg

DRUGS (33)
  1. RETACRIT [Suspect]
     Active Substance: EPOETIN ALFA-EPBX
     Indication: Myelodysplastic syndrome
     Dosage: OTHER QUANTITY : 40000 UNITS;?FREQUENCY : AS DIRECTED;?
     Route: 058
  2. AMLODIPINE [Concomitant]
     Active Substance: AMLODIPINE BESYLATE
  3. Besylate [Concomitant]
  4. ARAVA [Concomitant]
     Active Substance: LEFLUNOMIDE
  5. ATORVASTATIN [Concomitant]
     Active Substance: ATORVASTATIN
  6. CALCIUM [Concomitant]
     Active Substance: CALCIUM
  7. BENADRYL ALLERGY [Concomitant]
     Active Substance: DIPHENHYDRAMINE HYDROCHLORIDE
  8. Butalbitel-APAP-Caffeine [Concomitant]
  9. CARVEDILOL [Concomitant]
     Active Substance: CARVEDILOL
  10. DICLOFENAC SODIUM [Concomitant]
     Active Substance: DICLOFENAC SODIUM
  11. Montelukast Sodium Plaquenil [Concomitant]
  12. RITUXAN [Concomitant]
     Active Substance: RITUXIMAB
  13. DIFFERIN [Concomitant]
     Active Substance: ADAPALENE
  14. Multivitamin Adults [Concomitant]
  15. PREDNISONE [Concomitant]
     Active Substance: PREDNISONE
  16. TRELEGY [Concomitant]
  17. Ellipta [Concomitant]
  18. FENOFIBRATE [Concomitant]
     Active Substance: FENOFIBRATE
  19. NORCO [Concomitant]
     Active Substance: ACETAMINOPHEN\HYDROCODONE BITARTRATE
  20. hydrALAZINE HCI [Concomitant]
  21. PROAIR HFA [Concomitant]
     Active Substance: ALBUTEROL SULFATE
  22. HYDROCHLOROTHIAZIDE\TRIAMTERENE [Concomitant]
     Active Substance: HYDROCHLOROTHIAZIDE\TRIAMTERENE
  23. GABAPENTIN [Concomitant]
     Active Substance: GABAPENTIN
  24. Olmesartan MedOXDmil [Concomitant]
  25. TYLENOL EXTRA STRENGTH [Concomitant]
     Active Substance: ACETAMINOPHEN
  26. HYDROXYZINE HYDROCHLORIDE [Concomitant]
     Active Substance: HYDROXYZINE HYDROCHLORIDE
  27. PROLIA [Concomitant]
     Active Substance: DENOSUMAB
  28. VASCEPA [Concomitant]
     Active Substance: ICOSAPENT ETHYL
  29. LEFLUNOMIDE [Concomitant]
     Active Substance: LEFLUNOMIDE
  30. LEVETIRACETAM [Concomitant]
     Active Substance: LEVETIRACETAM
  31. VITAMIN D [Concomitant]
     Active Substance: VITAMIN D NOS
  32. lpratropium Bromide [Concomitant]
  33. OMEPRAZOLE [Concomitant]
     Active Substance: OMEPRAZOLE

REACTIONS (1)
  - Death [None]
